FAERS Safety Report 12268345 (Version 1)
Quarter: 2016Q2

REPORT INFORMATION
  Report Type: Spontaneous
  Country: CN (occurrence: CN)
  Receive Date: 20160414
  Receipt Date: 20160414
  Transmission Date: 20160815
  Serious: Yes (Other)
  Sender: FDA-Public Use
  Company Number: CN-PFIZER INC-2016207582

PATIENT
  Age: 74 Year
  Sex: Female
  Weight: 55 kg

DRUGS (1)
  1. CELECOXIB. [Suspect]
     Active Substance: CELECOXIB
     Indication: ARTHRALGIA
     Dosage: 200 MG, 2X/DAY
     Route: 048
     Dates: start: 20151103, end: 20151103

REACTIONS (2)
  - Vertigo [Recovering/Resolving]
  - Amaurosis [Recovering/Resolving]

NARRATIVE: CASE EVENT DATE: 20151103
